FAERS Safety Report 24878917 (Version 1)
Quarter: 2025Q1

REPORT INFORMATION
  Report Type: Spontaneous
  Country: US (occurrence: US)
  Receive Date: 20250123
  Receipt Date: 20250123
  Transmission Date: 20250409
  Serious: No
  Sender: CATALYST PHARMA
  Company Number: US-CATALYST PHARMACEUTICALS, INC-US-CATA-23-00227

PATIENT
  Age: 20 Year
  Sex: Female
  Weight: 42.63 kg

DRUGS (4)
  1. FIRDAPSE [Suspect]
     Active Substance: AMIFAMPRIDINE PHOSPHATE
     Indication: Congenital myasthenic syndrome
     Dosage: 5 MG THREE TIMES A DAY
     Route: 048
     Dates: start: 20220422
  2. PROZAC [Concomitant]
     Active Substance: FLUOXETINE HYDROCHLORIDE
     Indication: Depression
     Dosage: 20 MILLIGRAM, QD
     Route: 065
  3. MESTINON [Concomitant]
     Active Substance: PYRIDOSTIGMINE BROMIDE
     Indication: Congenital myasthenic syndrome
     Dosage: 180 MILLIGRAM, QD
     Route: 065
  4. MONTELUKAST [Concomitant]
     Active Substance: MONTELUKAST
     Indication: Hypersensitivity
     Dosage: 10 MILLIGRAM, QD
     Route: 065

REACTIONS (3)
  - Asthenia [Not Recovered/Not Resolved]
  - Drug ineffective [Unknown]
  - Off label use [Unknown]

NARRATIVE: CASE EVENT DATE: 20220422
